FAERS Safety Report 5283736-2 (Version None)
Quarter: 2007Q2

REPORT INFORMATION
  Report Type: 
  Country: None (occurrence: None)
  Receive Date: 20070402
  Receipt Date: 20070329
  Transmission Date: 20071010
  Serious: Yes (Death)
  Sender: FDA-Public Use
  Company Number: KR-GILEAD-2007-0011457

PATIENT
  Sex: Female

DRUGS (4)
  1. ADEFOVIR DIPIVOXIL [Suspect]
     Indication: HEPATITIS B
     Route: 048
     Dates: start: 20060427
  2. LAMIVUDINE [Concomitant]
     Dates: start: 20041123
  3. FUROSEMIDE [Concomitant]
     Dates: start: 20041123
  4. SPIRONOLACTONE [Concomitant]
     Dates: start: 20041123

REACTIONS (1)
  - PNEUMONIA [None]
